FAERS Safety Report 24691932 (Version 1)
Quarter: 2024Q4

REPORT INFORMATION
  Report Type: Spontaneous
  Country: FR (occurrence: FR)
  Receive Date: 20241203
  Receipt Date: 20241203
  Transmission Date: 20250114
  Serious: Yes (Hospitalization)
  Sender: AMGEN
  Company Number: None

PATIENT
  Age: 50 Year
  Sex: Female
  Weight: 68 kg

DRUGS (3)
  1. VECTIBIX [Suspect]
     Active Substance: PANITUMUMAB
     Indication: Adenocarcinoma of colon
     Dosage: 430 MILLIGRAM
     Route: 040
     Dates: start: 20241105
  2. IRINOTECAN [Suspect]
     Active Substance: IRINOTECAN
     Indication: Adenocarcinoma of colon
     Dosage: 340 MILLIGRAM
     Route: 040
     Dates: start: 20241105
  3. FLUOROURACIL [Suspect]
     Active Substance: FLUOROURACIL
     Indication: Adenocarcinoma of colon
     Dosage: 4250 MG IVC725 MG IVL
     Route: 040
     Dates: start: 20241105

REACTIONS (1)
  - Colitis [Recovered/Resolved]

NARRATIVE: CASE EVENT DATE: 20241111
